FAERS Safety Report 14286131 (Version 2)
Quarter: 2018Q3

REPORT INFORMATION
  Report Type: Spontaneous
  Country: AU (occurrence: AU)
  Receive Date: 20171214
  Receipt Date: 20180906
  Transmission Date: 20181010
  Serious: Yes (Hospitalization, Other)
  Sender: FDA-Public Use
  Company Number: AU-009507513-1712AUS005555

PATIENT
  Sex: Female

DRUGS (1)
  1. ROCURONIUM BROMIDE. [Suspect]
     Active Substance: ROCURONIUM BROMIDE
     Dosage: UNK

REACTIONS (2)
  - Anaphylactic reaction [Recovered/Resolved]
  - Cardiac arrest [Recovered/Resolved]
